FAERS Safety Report 8483420 (Version 2)
Quarter: 2014Q1

REPORT INFORMATION
  Report Type: Spontaneous
  Country: US (occurrence: US)
  Receive Date: 20120329
  Receipt Date: 20140331
  Transmission Date: 20141002
  Serious: No
  Sender: FDA-Public Use
  Company Number: US-MYLANLABS-2011S1021692

PATIENT
  Sex: Male

DRUGS (17)
  1. FENTANYL TRANSDERMAL SYSTEM [Suspect]
     Indication: BACK PAIN
     Dosage: CHANGE Q72H
     Route: 062
  2. FENTANYL TRANSDERMAL SYSTEM [Suspect]
     Indication: BACK PAIN
     Dosage: CHANGE Q72H
     Route: 062
  3. FENTANYL TRANSDERMAL SYSTEM [Suspect]
     Indication: BACK PAIN
     Dosage: CHANGE Q72H
     Route: 062
  4. LORTAB [Concomitant]
     Indication: PAIN
     Dates: end: 201105
  5. SOMA [Concomitant]
     Indication: PAIN
     Dates: end: 201105
  6. GABAPENTIN [Concomitant]
     Indication: PAIN
  7. FOLIC ACID [Concomitant]
  8. TIZANIDINE [Concomitant]
     Indication: PAIN
  9. CYMBALTA [Concomitant]
     Indication: PAIN
  10. LIPITOR [Concomitant]
     Indication: BLOOD CHOLESTEROL
  11. VALTREX [Concomitant]
  12. COMBIVENT [Concomitant]
  13. CREON [Concomitant]
  14. IBUPROFEN [Concomitant]
  15. CALTRATE [Concomitant]
  16. CENTRUM [Concomitant]
  17. ZYRTEC [Concomitant]

REACTIONS (3)
  - Drug effect decreased [Not Recovered/Not Resolved]
  - Back pain [Not Recovered/Not Resolved]
  - Drug screen negative [Not Recovered/Not Resolved]
